FAERS Safety Report 12812872 (Version 1)
Quarter: 2016Q4

REPORT INFORMATION
  Report Type: Report from Study
  Country: US (occurrence: US)
  Receive Date: 20161006
  Receipt Date: 20161006
  Transmission Date: 20170207
  Serious: Yes (Other)
  Sender: FDA-Public Use
  Company Number: US-ROCHE-1837037

PATIENT
  Age: 56 Year
  Sex: Female
  Weight: 59.5 kg

DRUGS (2)
  1. BEVACIZUMAB [Suspect]
     Active Substance: BEVACIZUMAB
     Indication: FALLOPIAN TUBE CANCER
     Route: 042
     Dates: start: 20120531, end: 20130801
  2. VELIPARIB [Suspect]
     Active Substance: VELIPARIB
     Indication: FALLOPIAN TUBE CANCER
     Route: 048
     Dates: start: 20120510, end: 20130801

REACTIONS (2)
  - Anaemia [Unknown]
  - Dyspnoea [Unknown]
